FAERS Safety Report 7147442-1 (Version None)
Quarter: 2010Q4

REPORT INFORMATION
  Report Type: 
  Country: None (occurrence: None)
  Receive Date: 20101209
  Receipt Date: 20070222
  Transmission Date: 20110411
  Serious: Yes (Death)
  Sender: FDA-Public Use
  Company Number: US-ACTELION-A-US2006-14490

PATIENT

DRUGS (16)
  1. ILOPROST INHALATION SOLUTION 5UG US [Suspect]
     Indication: PULMONARY ARTERIAL HYPERTENSION
     Dosage: 5 UG, 5 X DAY
     Route: 055
     Dates: start: 20060728, end: 20070221
  2. TRACLEER [Concomitant]
     Indication: PULMONARY HYPERTENSION
  3. POTASSIUM CHLORIDE [Concomitant]
  4. FUROSEMIDE [Concomitant]
  5. EVISTA [Concomitant]
  6. ASPIRIN [Concomitant]
  7. ATORVASTATIN [Concomitant]
  8. ADVAIR [Concomitant]
  9. ATENOLOL [Concomitant]
  10. GLIPIZIDE W/METFORMIN HYDROCHLORIDE [Concomitant]
  11. BONIVA [Concomitant]
  12. AMIODARONE [Concomitant]
  13. HYZAAR [Concomitant]
  14. NORVASC [Concomitant]
  15. PLAVIX [Concomitant]
  16. ALLOPURINOL [Concomitant]

REACTIONS (2)
  - DEATH [None]
  - HEADACHE [None]
